FAERS Safety Report 6519434-4 (Version None)
Quarter: 2009Q4

REPORT INFORMATION
  Report Type: 
  Country: None (occurrence: None)
  Receive Date: 20091228
  Receipt Date: 20091221
  Transmission Date: 20100525
  Serious: Yes (Hospitalization)
  Sender: FDA-Public Use
  Company Number: DE-SANOFI-AVENTIS-F04200900100

PATIENT
  Age: 48 Year
  Sex: Male
  Weight: 96 kg

DRUGS (7)
  1. OXALIPLATIN [Suspect]
     Route: 041
     Dates: start: 20090909, end: 20090909
  2. DOCETAXEL [Suspect]
     Route: 041
     Dates: start: 20090909, end: 20090909
  3. FLUOROURACIL [Suspect]
     Route: 041
     Dates: start: 20090909, end: 20090909
  4. FOLINIC ACID [Suspect]
     Route: 041
     Dates: start: 20090909, end: 20090909
  5. CIPRO [Concomitant]
     Route: 048
     Dates: start: 20090701
  6. ROCEPHIN [Concomitant]
  7. CLONT [Concomitant]

REACTIONS (1)
  - LARGE INTESTINE PERFORATION [None]
